FAERS Safety Report 4942504-9 (Version None)
Quarter: 2006Q1

REPORT INFORMATION
  Report Type: 
  Country: None (occurrence: None)
  Receive Date: 20060313
  Receipt Date: 20050323
  Transmission Date: 20060701
  Serious: No
  Sender: FDA-Public Use
  Company Number: US-GLAXOSMITHKLINE-A0550927A

PATIENT
  Age: 59 Year
  Sex: Female

DRUGS (11)
  1. NICORETTE (MINT) [Suspect]
  2. NICORETTE [Suspect]
  3. NICODERM CQ [Suspect]
  4. PRAVACHOL [Concomitant]
  5. CRESTOR [Concomitant]
  6. DYAZIDE [Concomitant]
  7. PREMARIN [Concomitant]
  8. SYNTHROID [Concomitant]
  9. POTASSIUM [Concomitant]
  10. CHLORAZEPATE [Concomitant]
  11. CENTRUM SILVER [Concomitant]

REACTIONS (6)
  - ASTHENIA [None]
  - DISTURBANCE IN ATTENTION [None]
  - DRUG ABUSER [None]
  - DRUG WITHDRAWAL SYNDROME [None]
  - ERYTHEMA [None]
  - HYPERSENSITIVITY [None]
